FAERS Safety Report 8881141 (Version 1)
Quarter: 2012Q4

REPORT INFORMATION
  Report Type: 
  Country: FR (occurrence: FR)
  Receive Date: 20121101
  Receipt Date: 20121101
  Transmission Date: 20130627
  Serious: Yes (Other)
  Sender: FDA-Public Use
  Company Number: FR-CUBIST-2012S1000896

PATIENT
  Sex: Male

DRUGS (1)
  1. CUBICIN [Suspect]
     Indication: POST PROCEDURAL INFECTION
     Route: 042
     Dates: start: 20121016, end: 20121018

REACTIONS (1)
  - Hallucination [Unknown]
